FAERS Safety Report 10280518 (Version 1)
Quarter: 2014Q3

REPORT INFORMATION
  Report Type: Spontaneous
  Country: TR (occurrence: TR)
  Receive Date: 20140707
  Receipt Date: 20140707
  Transmission Date: 20150326
  Serious: Yes (Hospitalization)
  Sender: FDA-Public Use
  Company Number: TR-NOVOPROD-415058

PATIENT
  Sex: Female
  Weight: 3 kg

DRUGS (6)
  1. LEVEMIR [Suspect]
     Active Substance: INSULIN DETEMIR
     Indication: GESTATIONAL DIABETES
     Dosage: 9 U, QD
     Route: 064
     Dates: start: 201403, end: 20140521
  2. MAGVITAL [Concomitant]
     Indication: MINERAL SUPPLEMENTATION
     Dosage: 1 X 1
     Route: 064
     Dates: start: 20140218, end: 20140521
  3. NOVORAPID [Suspect]
     Active Substance: INSULIN ASPART
     Indication: GESTATIONAL DIABETES
     Dosage: 7 U, QD
     Route: 064
     Dates: start: 20140212, end: 20140521
  4. SANTAFER FORT [Concomitant]
     Indication: MINERAL SUPPLEMENTATION
     Dosage: 1 X 1
     Route: 064
     Dates: start: 20140218, end: 20140521
  5. FERAMAT [Concomitant]
     Dosage: 1X1
     Route: 064
     Dates: start: 20140521
  6. DECAVIT                            /07504101/ [Concomitant]
     Indication: VITAMIN SUPPLEMENTATION
     Dosage: 1 X 1
     Route: 064
     Dates: start: 201401, end: 20140521

REACTIONS (2)
  - Umbilical cord around neck [Recovered/Resolved]
  - Foetal exposure during pregnancy [Recovered/Resolved]

NARRATIVE: CASE EVENT DATE: 20140221
